FAERS Safety Report 6499120-X (Version None)
Quarter: 2009Q4

REPORT INFORMATION
  Report Type: 
  Country: None (occurrence: None)
  Receive Date: 20091215
  Receipt Date: 20091203
  Transmission Date: 20100525
  Serious: Yes (Other)
  Sender: FDA-Public Use
  Company Number: FR-ELI_LILLY_AND_COMPANY-FR200908004548

PATIENT
  Age: 54 Year
  Sex: Male
  Weight: 96 kg

DRUGS (3)
  1. FORTEO [Suspect]
     Indication: OSTEOPOROTIC FRACTURE
     Dosage: 20 UG, DAILY (1/D)
     Route: 058
     Dates: start: 20090323, end: 20091023
  2. DEDROGYL [Concomitant]
     Dosage: 2 DROPS, UNKNOWN
  3. IDEOS                              /00944201/ [Concomitant]
     Dosage: 1 TABLET, DAILY (1/D)
     Route: 065

REACTIONS (2)
  - CAROTID ARTERY STENOSIS [None]
  - VENTRICULAR EXTRASYSTOLES [None]
